FAERS Safety Report 20797837 (Version 1)
Quarter: 2022Q2

REPORT INFORMATION
  Report Type: Spontaneous
  Country: KR (occurrence: None)
  Receive Date: 20220506
  Receipt Date: 20220506
  Transmission Date: 20220720
  Serious: Yes (Other)
  Sender: FDA-Public Use
  Company Number: 2022A169789

PATIENT
  Sex: Male

DRUGS (3)
  1. DURVALUMAB [Suspect]
     Active Substance: DURVALUMAB
     Route: 042
  2. PALLIATIVE PEMBROLIZUMAB [Concomitant]
     Dates: start: 202204
  3. ALIMTA/CARBOPLATIN [Concomitant]
     Dates: start: 202204

REACTIONS (1)
  - Recurrent cancer [Unknown]
